FAERS Safety Report 6164104-8 (Version None)
Quarter: 2009Q2

REPORT INFORMATION
  Report Type: 
  Country: None (occurrence: None)
  Receive Date: 20090422
  Receipt Date: 20090417
  Transmission Date: 20091009
  Serious: Yes (Hospitalization)
  Sender: FDA-Public Use
  Company Number: B0514720A

PATIENT
  Sex: Male

DRUGS (19)
  1. ROSIGLITAZONE [Suspect]
     Route: 048
     Dates: start: 20021220, end: 20080304
  2. SULPHONYLUREA [Suspect]
     Route: 048
     Dates: start: 20071228
  3. METFORMIN HCL [Concomitant]
     Dosage: 2550MG PER DAY
     Route: 048
     Dates: start: 20010501
  4. SELOKEN ZOC [Concomitant]
     Indication: HYPERTENSION
     Dosage: 200MG PER DAY
     Route: 048
     Dates: start: 20020313
  5. ALBYL MINOR [Concomitant]
     Indication: PROPHYLAXIS
     Dosage: 125MG PER DAY
     Route: 048
     Dates: start: 19950101
  6. ATACAND [Concomitant]
     Indication: HYPERTENSION
     Dosage: 16MG PER DAY
     Route: 048
     Dates: start: 20001026
  7. LASIX [Concomitant]
     Indication: HYPERTENSION
     Dosage: 30MG PER DAY
     Route: 048
     Dates: start: 20010528
  8. INOLAXOL [Concomitant]
     Dosage: 5MG PER DAY
     Route: 048
     Dates: start: 20010101
  9. PLENDIL [Concomitant]
     Indication: HYPERTENSION
     Dosage: 5MG PER DAY
     Route: 048
     Dates: start: 20021106
  10. DIKLOFENAK [Concomitant]
     Indication: INFLAMMATION
     Dosage: 50MG PER DAY
     Route: 048
     Dates: start: 20021106
  11. LANSOPRAZOLE [Concomitant]
     Dosage: 30MG PER DAY
     Route: 048
     Dates: start: 20021106
  12. TROMBYL [Concomitant]
     Indication: PROPHYLAXIS
     Dosage: 75MG PER DAY
     Route: 048
     Dates: start: 20030426
  13. SIMVASTATIN [Concomitant]
     Dosage: 20MG PER DAY
     Route: 048
     Dates: start: 20040824
  14. IMDUR [Concomitant]
     Indication: PAIN
     Dosage: 60MG PER DAY
     Route: 048
     Dates: start: 20040830
  15. SOTALOL HYDROCHLORIDE [Concomitant]
     Indication: ATRIAL FIBRILLATION
     Dosage: 160MG PER DAY
     Route: 048
     Dates: start: 20041230
  16. TRIOBE [Concomitant]
     Indication: VITAMIN B COMPLEX DEFICIENCY
     Dosage: 4.3MG PER DAY
     Route: 048
     Dates: start: 20041207
  17. LEVOTHYROXINE SODIUM [Concomitant]
     Indication: HYPOTHYROIDISM
     Dosage: 50MCG PER DAY
     Route: 048
     Dates: start: 20061115
  18. ATACAND HCT [Concomitant]
     Indication: HYPERTENSION
     Route: 048
     Dates: start: 20061202
  19. ISOSORBIDE MONONITRATE [Concomitant]
     Indication: PAIN
     Dosage: 60MG PER DAY
     Route: 048
     Dates: start: 20040830

REACTIONS (1)
  - CONSTIPATION [None]
